FAERS Safety Report 11722718 (Version 2)
Quarter: 2015Q4

REPORT INFORMATION
  Report Type: Spontaneous
  Country: US (occurrence: US)
  Receive Date: 20151111
  Receipt Date: 20151214
  Transmission Date: 20160304
  Serious: Yes (Hospitalization)
  Sender: FDA-Public Use
  Company Number: US-BEH-2015055544

PATIENT
  Age: 58 Year
  Sex: Female
  Weight: 85 kg

DRUGS (30)
  1. COUMADIN [Concomitant]
     Active Substance: WARFARIN SODIUM
  2. PLAQUENIL [Concomitant]
     Active Substance: HYDROXYCHLOROQUINE SULFATE
  3. OXYCONTIN [Concomitant]
     Active Substance: OXYCODONE HYDROCHLORIDE
  4. GUAIFENESIN. [Concomitant]
     Active Substance: GUAIFENESIN
  5. ESTRING [Concomitant]
     Active Substance: ESTRADIOL
  6. SYNTHROID [Concomitant]
     Active Substance: LEVOTHYROXINE SODIUM
  7. PREDNISONE. [Concomitant]
     Active Substance: PREDNISONE
  8. VALTREX [Concomitant]
     Active Substance: VALACYCLOVIR HYDROCHLORIDE
  9. VIVELLE-DOT [Concomitant]
     Active Substance: ESTRADIOL
  10. HIZENTRA [Suspect]
     Active Substance: HUMAN IMMUNOGLOBULIN G
     Indication: IMMUNODEFICIENCY COMMON VARIABLE
     Route: 058
  11. VALIUM [Concomitant]
     Active Substance: DIAZEPAM
  12. SKELAXIN [Concomitant]
     Active Substance: METAXALONE
  13. ZOFRAN [Concomitant]
     Active Substance: ONDANSETRON HYDROCHLORIDE
  14. NEURONTIN [Concomitant]
     Active Substance: GABAPENTIN
  15. TYLENOL ARTHRITIS PAIN [Concomitant]
     Active Substance: ACETAMINOPHEN
  16. RESTASIS [Concomitant]
     Active Substance: CYCLOSPORINE
  17. PROCORT NEB [Concomitant]
  18. NYSTATIN. [Concomitant]
     Active Substance: NYSTATIN
  19. PROBIOTIC [Concomitant]
     Active Substance: PROBIOTICS NOS
  20. VITAMIN D [Concomitant]
     Active Substance: CHOLECALCIFEROL
  21. LIDODERM [Concomitant]
     Active Substance: LIDOCAINE
  22. DIFLUCAN [Concomitant]
     Active Substance: FLUCONAZOLE
  23. ZITHROMAX [Concomitant]
     Active Substance: AZITHROMYCIN DIHYDRATE
  24. OXYGEN. [Concomitant]
     Active Substance: OXYGEN
  25. OXYCODONE [Concomitant]
     Active Substance: OXYCODONE
  26. HIZENTRA [Suspect]
     Active Substance: HUMAN IMMUNOGLOBULIN G
     Route: 058
  27. BUDESONIDE. [Concomitant]
     Active Substance: BUDESONIDE
  28. DIAZEPAM. [Concomitant]
     Active Substance: DIAZEPAM
  29. CLONAZEPAM. [Concomitant]
     Active Substance: CLONAZEPAM
  30. ADVAIR HFA [Concomitant]
     Active Substance: FLUTICASONE PROPIONATE\SALMETEROL XINAFOATE

REACTIONS (3)
  - Drug dose omission [Unknown]
  - Infection [Unknown]
  - Spinal operation [Unknown]

NARRATIVE: CASE EVENT DATE: 20150925
